FAERS Safety Report 14146615 (Version 1)
Quarter: 2017Q4

REPORT INFORMATION
  Report Type: Spontaneous
  Country: US (occurrence: US)
  Receive Date: 20171031
  Receipt Date: 20171031
  Transmission Date: 20180321
  Serious: No
  Sender: FDA-Public Use
  Company Number: US-BAUSCH-BL-2016-024106

PATIENT
  Sex: Female

DRUGS (2)
  1. BEPREVE [Suspect]
     Active Substance: BEPOTASTINE BESILATE
     Indication: EYE ALLERGY
     Route: 065
  2. BEPREVE [Suspect]
     Active Substance: BEPOTASTINE BESILATE
     Indication: DRY EYE

REACTIONS (1)
  - Drug ineffective [Unknown]
